FAERS Safety Report 5070997-8 (Version None)
Quarter: 2006Q3

REPORT INFORMATION
  Report Type: 
  Country: None (occurrence: None)
  Receive Date: 20060804
  Receipt Date: 20051119
  Transmission Date: 20061208
  Serious: Yes (Other)
  Sender: FDA-Public Use
  Company Number: US-GLAXOSMITHKLINE-A0583069A

PATIENT
  Sex: Male

DRUGS (4)
  1. NICORETTE [Suspect]
     Dosage: 4MG SEE DOSAGE TEXT
  2. NICORETTE [Suspect]
     Dosage: 2MG SEE DOSAGE TEXT
  3. COMMIT [Suspect]
     Dosage: 2MG SEE DOSAGE TEXT
  4. COMMIT [Suspect]
     Dosage: 4MG SEE DOSAGE TEXT

REACTIONS (5)
  - ADVERSE EVENT [None]
  - DRUG ABUSER [None]
  - DRUG INEFFECTIVE [None]
  - INTENTIONAL DRUG MISUSE [None]
  - JAW DISORDER [None]
